FAERS Safety Report 8446771 (Version 3)
Quarter: 2012Q4

REPORT INFORMATION
  Report Type: 
  Country: US (occurrence: US)
  Receive Date: 20120308
  Receipt Date: 20120830
  Transmission Date: 20130627
  Serious: Yes (Hospitalization)
  Sender: FDA-Public Use
  Company Number: US-BAYER-2012-021291

PATIENT
  Age: 40 Year
  Sex: Female
  Weight: 87.53 kg

DRUGS (5)
  1. YASMIN [Suspect]
     Indication: VAGINAL HAEMORRHAGE
     Dosage: UNK
     Dates: start: 20080929, end: 20090317
  2. NAPROXEN [Concomitant]
     Dosage: 500 mg, UNK
     Route: 048
     Dates: start: 20081220
  3. HYDROCODONE [Concomitant]
     Dosage: 5mg/500 mg
     Route: 048
     Dates: start: 20081220
  4. CYCLOBENZAPRINE [Concomitant]
     Dosage: 10 mg, UNK
     Route: 048
     Dates: start: 20081220
  5. FAMOTIDINE [Concomitant]
     Dosage: 40 mg, UNK
     Route: 048
     Dates: start: 20081212, end: 20090102

REACTIONS (10)
  - Pulmonary embolism [None]
  - Deep vein thrombosis [None]
  - General physical health deterioration [None]
  - Emotional distress [None]
  - Pain [None]
  - Chest pain [None]
  - Dyspnoea [None]
  - Oedema peripheral [None]
  - Depression [None]
  - Anxiety [None]
